FAERS Safety Report 7495075-X (Version None)
Quarter: 2011Q2

REPORT INFORMATION
  Report Type: 
  Country: None (occurrence: None)
  Receive Date: 20110520
  Receipt Date: 20110513
  Transmission Date: 20111010
  Serious: Yes (Other)
  Sender: FDA-Public Use
  Company Number: GB-GILEAD-2011-0039522

PATIENT
  Sex: Female

DRUGS (3)
  1. REYATAZ [Concomitant]
  2. ABACAVIR SULFATE AND LAMIVUDINE [Concomitant]
  3. TRUVADA [Suspect]
     Indication: HIV INFECTION

REACTIONS (1)
  - RENAL TUBULAR ACIDOSIS [None]
